FAERS Safety Report 14583075 (Version 1)
Quarter: 2018Q1

REPORT INFORMATION
  Report Type: Spontaneous
  Country: FI (occurrence: FI)
  Receive Date: 20180228
  Receipt Date: 20180228
  Transmission Date: 20180509
  Serious: Yes (Other)
  Sender: FDA-Public Use
  Company Number: FI-TEVA-2018-FI-860809

PATIENT
  Age: 31 Year
  Sex: Male

DRUGS (2)
  1. AZITHROMYCIN ANHYDROUS. [Suspect]
     Active Substance: AZITHROMYCIN ANHYDROUS
     Indication: PRODUCT USED FOR UNKNOWN INDICATION
     Route: 048
     Dates: start: 201712, end: 201712
  2. AGRIPPAL [Suspect]
     Active Substance: INFLUENZA VIRUS VACCINE
     Dosage: 1,DF,X1
     Route: 030
     Dates: start: 20171201, end: 20171201

REACTIONS (3)
  - Pyrexia [Recovering/Resolving]
  - Pharyngeal oedema [Recovering/Resolving]
  - Oral candidiasis [Recovering/Resolving]

NARRATIVE: CASE EVENT DATE: 20171203
